FAERS Safety Report 6369299-9 (Version None)
Quarter: 2009Q3

REPORT INFORMATION
  Report Type: 
  Country: None (occurrence: None)
  Receive Date: 20090922
  Receipt Date: 20080923
  Transmission Date: 20100115
  Serious: No
  Sender: FDA-Public Use
  Company Number: US-ALLERGAN-0811925US

PATIENT
  Sex: Female

DRUGS (1)
  1. FML [Suspect]
     Indication: DRUG USE FOR UNKNOWN INDICATION
     Dosage: UNK, QID
     Route: 047
     Dates: start: 20080919, end: 20080923

REACTIONS (2)
  - EYE PAIN [None]
  - VISION BLURRED [None]
